FAERS Safety Report 8440668-6 (Version None)
Quarter: 2012Q2

REPORT INFORMATION
  Report Type: 
  Country: None (occurrence: None)
  Receive Date: 20120615
  Receipt Date: 20120608
  Transmission Date: 20120825
  Serious: No
  Sender: FDA-Public Use
  Company Number: US-B.I. PHARMACEUTICALS,INC./RIDGEFIELD-2012-BP-10769BP

PATIENT
  Sex: Female

DRUGS (10)
  1. SPIRIVA [Suspect]
     Indication: CHRONIC OBSTRUCTIVE PULMONARY DISEASE
     Dosage: 18 MCG
     Route: 055
     Dates: start: 20120405
  2. CARDIZEM CD [Concomitant]
     Indication: HEART RATE ABNORMAL
     Dosage: 240 MG
     Route: 048
     Dates: start: 20111101
  3. ZOLOFT [Concomitant]
     Indication: DEPRESSION
     Dosage: 50 MG
     Route: 048
     Dates: start: 20120201
  4. LISINOPRIL [Concomitant]
     Indication: HYPERTENSION
     Dosage: 5 MG
     Route: 048
     Dates: start: 20111101
  5. LASIX [Concomitant]
     Indication: FLUID RETENTION
     Dosage: 20 MG
     Route: 048
     Dates: start: 20111101
  6. ASPIRIN [Concomitant]
     Indication: PROPHYLAXIS
     Dosage: 81 MG
     Route: 048
     Dates: start: 20080101
  7. ZOLPIDEM [Concomitant]
     Indication: INSOMNIA
     Dosage: 5 MG
     Route: 048
     Dates: start: 20110101
  8. NEURONTIN [Concomitant]
     Indication: NEUROPATHY PERIPHERAL
     Route: 048
     Dates: start: 20110701
  9. OMEPRAZOLE [Concomitant]
     Indication: GASTRIC DISORDER
     Dosage: 20 MG
     Route: 048
     Dates: start: 20080101
  10. METFORMIN HCL [Concomitant]
     Indication: DIABETES MELLITUS
     Dosage: 500 MG
     Route: 048
     Dates: start: 20080101

REACTIONS (1)
  - DYSPNOEA [None]
